FAERS Safety Report 8167709-8 (Version None)
Quarter: 2012Q1

REPORT INFORMATION
  Report Type: 
  Country: None (occurrence: None)
  Receive Date: 20120227
  Receipt Date: 20120221
  Transmission Date: 20120608
  Serious: Yes (Hospitalization, Other)
  Sender: FDA-Public Use
  Company Number: US-JNJFOC-20120206568

PATIENT
  Sex: Female
  Weight: 105.24 kg

DRUGS (18)
  1. FLEXERIL [Concomitant]
     Indication: FIBROMYALGIA
     Route: 048
     Dates: start: 19820101
  2. TOPAMAX [Suspect]
     Route: 048
     Dates: start: 20070101, end: 20120101
  3. TOPIRAMATE [Suspect]
     Indication: MAJOR DEPRESSION
     Route: 048
     Dates: start: 20050101, end: 20070101
  4. FLONASE [Concomitant]
     Indication: MULTIPLE ALLERGIES
     Dosage: 1 SQUIRT TWICE DAILY
     Route: 055
     Dates: start: 20080101
  5. ALBUTEROL [Concomitant]
     Indication: ASTHMA
     Dosage: AS NEEDED
     Route: 055
  6. TOPIRAMATE [Suspect]
     Indication: BIPOLAR DISORDER
     Route: 048
     Dates: start: 20120101
  7. KLONOPIN [Concomitant]
     Indication: FIBROMYALGIA
     Route: 048
     Dates: start: 19820101
  8. TOPAMAX [Suspect]
     Indication: BIPOLAR DISORDER
     Route: 048
     Dates: start: 20070101, end: 20120101
  9. PROCATEROL HCL [Concomitant]
     Indication: ASTHMA
     Dosage: AS NEEDED
     Route: 055
     Dates: start: 19820101
  10. TOPIRAMATE [Suspect]
     Route: 048
     Dates: start: 20050101, end: 20070101
  11. ADVAIR DISKUS 100/50 [Concomitant]
     Indication: ASTHMA
     Dosage: 250/50MG TWICE A DAY
     Route: 055
     Dates: start: 20040101
  12. PREMARIN [Concomitant]
     Indication: HORMONE REPLACEMENT THERAPY
     Route: 048
     Dates: start: 19850101
  13. TOPAMAX [Suspect]
     Route: 048
     Dates: start: 20020101, end: 20050101
  14. TOPAMAX [Suspect]
     Indication: MAJOR DEPRESSION
     Route: 048
     Dates: start: 20020101, end: 20050101
  15. TOPIRAMATE [Suspect]
     Route: 048
     Dates: start: 20120101
  16. SYNTHROID [Concomitant]
     Indication: THYROID DISORDER
     Route: 048
  17. MONTELUKAST SODIUM [Concomitant]
     Indication: ASTHMA
     Route: 048
     Dates: start: 19850101
  18. IBUPROFEN [Concomitant]
     Indication: OSTEOARTHRITIS
     Dosage: AS NEEDED
     Route: 048

REACTIONS (8)
  - SUICIDE ATTEMPT [None]
  - ANXIETY [None]
  - SUICIDAL IDEATION [None]
  - SOMNOLENCE [None]
  - BLOOD IRON DECREASED [None]
  - MAJOR DEPRESSION [None]
  - PNEUMONIA [None]
  - BIPOLAR DISORDER [None]
